FAERS Safety Report 9484210 (Version 1)
Quarter: 2013Q3

REPORT INFORMATION
  Report Type: Spontaneous
  Country: US (occurrence: US)
  Receive Date: 20130828
  Receipt Date: 20130828
  Transmission Date: 20140515
  Serious: Yes (Hospitalization)
  Sender: FDA-Public Use
  Company Number: US-AMGEN-KDL392963

PATIENT
  Age: 60 Year
  Sex: Male

DRUGS (3)
  1. ENBREL [Suspect]
     Indication: PSORIATIC ARTHROPATHY
     Dosage: UNK UNK, UNK
     Route: 065
     Dates: start: 20041231
  2. ENBREL [Suspect]
     Indication: PSORIASIS
  3. ADALIMUMAB [Concomitant]
     Dosage: UNK UNK, UNK
     Dates: start: 200903, end: 200906

REACTIONS (5)
  - Haemorrhage [Unknown]
  - Neck injury [Unknown]
  - Groin infection [Unknown]
  - Drug ineffective [Unknown]
  - Onychomadesis [Unknown]
